FAERS Safety Report 9891289 (Version 1)
Quarter: 2014Q1

REPORT INFORMATION
  Report Type: Spontaneous
  Country: US (occurrence: None)
  Receive Date: 20140210
  Receipt Date: 20140210
  Transmission Date: 20141002
  Serious: Yes (Other)
  Sender: FDA-Public Use
  Company Number: GB2014K0300SPO

PATIENT
  Age: 0 Day
  Sex: Female
  Weight: 98 kg

DRUGS (3)
  1. LANSOPRAZOLE [Suspect]
  2. AMLODIPINE [Suspect]
     Indication: HYPERTENSION
     Route: 048
     Dates: start: 201311, end: 201312
  3. IRON(IRON) [Concomitant]

REACTIONS (7)
  - Back pain [None]
  - Condition aggravated [None]
  - Drug ineffective [None]
  - Hiatus hernia [None]
  - Inhibitory drug interaction [None]
  - Pain [None]
  - Palpitations [None]
